FAERS Safety Report 14125939 (Version 2)
Quarter: 2018Q1

REPORT INFORMATION
  Report Type: Spontaneous
  Country: BR (occurrence: BR)
  Receive Date: 20171025
  Receipt Date: 20180212
  Transmission Date: 20180508
  Serious: Yes (Other)
  Sender: FDA-Public Use
  Company Number: BR-BIOMARINAP-BR-2015-108288

PATIENT
  Age: 39 Year
  Sex: Female
  Weight: 55 kg

DRUGS (7)
  1. LASIX [Concomitant]
     Active Substance: FUROSEMIDE
     Indication: MITRAL VALVE INCOMPETENCE
  2. ENALAPRIL [Concomitant]
     Active Substance: ENALAPRIL
     Indication: MITRAL VALVE INCOMPETENCE
  3. DIAZEPAM. [Concomitant]
     Active Substance: DIAZEPAM
     Indication: PRODUCT USED FOR UNKNOWN INDICATION
  4. ALDACTONE [Concomitant]
     Active Substance: SPIRONOLACTONE
     Indication: MITRAL VALVE INCOMPETENCE
  5. CARVEDILOL. [Concomitant]
     Active Substance: CARVEDILOL
     Indication: MITRAL VALVE INCOMPETENCE
  6. FUROSEMIDE. [Concomitant]
     Active Substance: FUROSEMIDE
     Indication: PRODUCT USED FOR UNKNOWN INDICATION
  7. ALDURAZYME [Suspect]
     Active Substance: LARONIDASE
     Indication: MUCOPOLYSACCHARIDOSIS I
     Dosage: 0.58 MG/KG, QW
     Route: 041
     Dates: start: 20021220, end: 20170721

REACTIONS (10)
  - Urticaria [Recovered/Resolved]
  - Malaise [Not Recovered/Not Resolved]
  - Hypersensitivity [Unknown]
  - Anaphylactic reaction [Recovered/Resolved]
  - Pruritus [Not Recovered/Not Resolved]
  - Hypersensitivity [Not Recovered/Not Resolved]
  - Blister [Not Recovered/Not Resolved]
  - Generalised erythema [Recovered/Resolved]
  - Cough [Recovered/Resolved]
  - Hypersensitivity [Recovered/Resolved]

NARRATIVE: CASE EVENT DATE: 201307
